FAERS Safety Report 6163760-8 (Version None)
Quarter: 2009Q2

REPORT INFORMATION
  Report Type: 
  Country: None (occurrence: None)
  Receive Date: 20090420
  Receipt Date: 20090420
  Transmission Date: 20091009
  Serious: Yes (Other)
  Sender: FDA-Public Use
  Company Number: None

PATIENT
  Age: 68 Year
  Sex: Male
  Weight: 96.6162 kg

DRUGS (4)
  1. ZOLADEX [Suspect]
     Dosage: 1 TIME, 10.8MG SC
     Dates: start: 20070418
  2. ANDROGEL [Concomitant]
  3. ARIMIDEX [Concomitant]
  4. ZOCOR [Concomitant]

REACTIONS (2)
  - BLOOD TESTOSTERONE DECREASED [None]
  - HOT FLUSH [None]
